FAERS Safety Report 10029209 (Version 1)
Quarter: 2014Q1

REPORT INFORMATION
  Report Type: Spontaneous
  Country: US (occurrence: US)
  Receive Date: 20140321
  Receipt Date: 20140321
  Transmission Date: 20141002
  Serious: Yes (Other)
  Sender: FDA-Public Use
  Company Number: PHHY2014US031780

PATIENT
  Age: 6 Year
  Sex: Female

DRUGS (9)
  1. BLEOMYCIN [Suspect]
  2. VINBLASTINE [Suspect]
  3. CISPLATIN [Suspect]
  4. CYCLOPHOSPHAMIDE [Suspect]
  5. DOXORUBICIN [Suspect]
  6. ETOPOSIDE [Suspect]
  7. CARBOPLATIN [Suspect]
  8. MELPHALAN [Suspect]
  9. BEVACIZUMAB [Concomitant]
     Dosage: 5 OR 10 MG/KG

REACTIONS (8)
  - Bone marrow failure [Recovered/Resolved]
  - Neutropenia [Recovered/Resolved]
  - Decreased appetite [Recovered/Resolved]
  - Venoocclusive liver disease [Recovered/Resolved]
  - Ascites [Recovered/Resolved]
  - Abdominal compartment syndrome [Recovered/Resolved]
  - Renal failure [Recovered/Resolved]
  - Respiratory failure [Recovered/Resolved]
